FAERS Safety Report 21046849 (Version 2)
Quarter: 2022Q3

REPORT INFORMATION
  Report Type: Spontaneous
  Country: US (occurrence: US)
  Receive Date: 20220706
  Receipt Date: 20220707
  Transmission Date: 20221026
  Serious: No
  Sender: FDA-Public Use
  Company Number: US-Melinta Therapeutics, LLC-US-MLNT-22-00062

PATIENT

DRUGS (1)
  1. KIMYRSA [Suspect]
     Active Substance: ORITAVANCIN DIPHOSPHATE
     Indication: Cellulitis
     Dosage: 77 ML OF 250 ML
     Route: 041

REACTIONS (3)
  - Erythema [Not Recovered/Not Resolved]
  - Adverse reaction [Unknown]
  - Infusion site extravasation [Unknown]
